FAERS Safety Report 23682313 (Version 1)
Quarter: 2024Q1

REPORT INFORMATION
  Report Type: Spontaneous
  Country: US (occurrence: None)
  Receive Date: 20240328
  Receipt Date: 20240328
  Transmission Date: 20240410
  Serious: Yes (Life-Threatening, Hospitalization)
  Sender: FDA-Public Use
  Company Number: 2024A074512

PATIENT
  Age: 66 Year
  Sex: Male

DRUGS (2)
  1. TICAGRELOR [Suspect]
     Active Substance: TICAGRELOR
     Dosage: 180.0MG ONCE/SINGLE ADMINISTRATION
     Route: 048
  2. METOPROLOL [Concomitant]
     Active Substance: METOPROLOL
     Indication: Coronary artery disease

REACTIONS (2)
  - Sinus arrest [Recovered/Resolved]
  - Presyncope [Recovered/Resolved]
